FAERS Safety Report 7313789-9 (Version None)
Quarter: 2011Q1

REPORT INFORMATION
  Report Type: 
  Country: None (occurrence: None)
  Receive Date: 20110225
  Receipt Date: 20110218
  Transmission Date: 20110831
  Serious: Yes (Other)
  Sender: FDA-Public Use
  Company Number: JP-PFIZER INC-2011037104

PATIENT
  Age: 63 Year
  Sex: Female

DRUGS (1)
  1. XALATAN [Suspect]
     Indication: NORMAL TENSION GLAUCOMA
     Dosage: 1 GTT, 1X/DAY, ON BOTH EYES
     Route: 047
     Dates: end: 20101121

REACTIONS (1)
  - INTRAOCULAR PRESSURE INCREASED [None]
